FAERS Safety Report 24660396 (Version 3)
Quarter: 2025Q1

REPORT INFORMATION
  Report Type: Spontaneous
  Country: US (occurrence: US)
  Receive Date: 20241125
  Receipt Date: 20250214
  Transmission Date: 20250408
  Serious: Yes (Disabling, Other)
  Sender: AMGEN
  Company Number: US-AMGEN-USASP2024229648

PATIENT
  Age: 58 Year
  Sex: Male
  Weight: 156 kg

DRUGS (45)
  1. TEPEZZA [Suspect]
     Active Substance: TEPROTUMUMAB-TRBW
     Indication: Endocrine ophthalmopathy
     Route: 040
     Dates: start: 20221206
  2. TEPEZZA [Suspect]
     Active Substance: TEPROTUMUMAB-TRBW
     Indication: Graves^ disease
     Route: 040
     Dates: start: 20230301
  3. TEPEZZA [Suspect]
     Active Substance: TEPROTUMUMAB-TRBW
     Dosage: 20 MILLIGRAM/KILOGRAM, (UNK INFUSION, TOTAL 3200 MILLIGRAM ADMINISTRED)
     Route: 040
     Dates: start: 20230414
  4. TEPEZZA [Suspect]
     Active Substance: TEPROTUMUMAB-TRBW
     Route: 040
     Dates: start: 20230505
  5. PREDNISONE [Suspect]
     Active Substance: PREDNISONE
     Indication: Product used for unknown indication
     Route: 048
     Dates: start: 202207
  6. ASPIRIN [Concomitant]
     Active Substance: ASPIRIN
     Route: 048
  7. ASPIRIN [Concomitant]
     Active Substance: ASPIRIN
     Route: 048
  8. ATORVASTATIN [Concomitant]
     Active Substance: ATORVASTATIN
     Route: 048
  9. CARVEDILOL [Concomitant]
     Active Substance: CARVEDILOL
     Dosage: 12.5 MILLIGRAM, BID
     Route: 048
  10. CARVEDILOL [Concomitant]
     Active Substance: CARVEDILOL
     Dosage: 6.25 MILLIGRAM, BID
     Route: 048
     Dates: start: 20240214
  11. ENTRESTO [Concomitant]
     Active Substance: SACUBITRIL\VALSARTAN
     Dosage: UNK, BID
     Route: 048
  12. FISH OIL [Concomitant]
     Active Substance: FISH OIL
     Indication: Blood triglycerides abnormal
     Dosage: 2000 MILLIGRAM, BID
     Route: 048
  13. FISH OIL [Concomitant]
     Active Substance: FISH OIL
     Dosage: 500 MILLIGRAM, BID
     Route: 048
     Dates: start: 20240214
  14. LASIX [Concomitant]
     Active Substance: FUROSEMIDE
     Dosage: 40 MILLIGRAM, QD
     Route: 048
  15. LEVOTHYROXINE [Concomitant]
     Active Substance: LEVOTHYROXINE
     Route: 048
  16. LEVOTHYROXINE [Concomitant]
     Active Substance: LEVOTHYROXINE
     Route: 048
  17. LEVOTHYROXINE [Concomitant]
     Active Substance: LEVOTHYROXINE
     Dosage: 75 MICROGRAM, QD
     Route: 048
  18. OMEPRAZOLE [Concomitant]
     Active Substance: OMEPRAZOLE
     Route: 065
  19. OMEPRAZOLE [Concomitant]
     Active Substance: OMEPRAZOLE
     Dosage: 40 MILLIGRAM, QD
     Route: 048
     Dates: start: 20240214
  20. POTASSIUM CHLORIDE [Concomitant]
     Active Substance: POTASSIUM CHLORIDE
     Indication: Hypokalaemia
     Dosage: UNK,
     Route: 048
     Dates: start: 20240214
  21. SORAFENIB [Concomitant]
     Active Substance: SORAFENIB
     Route: 065
  22. XARELTO [Concomitant]
     Active Substance: RIVAROXABAN
     Dosage: 20 MILLIGRAM, QD
     Route: 048
  23. DILTIAZEM HYDROCHLORIDE [Concomitant]
     Active Substance: DILTIAZEM HYDROCHLORIDE
     Dosage: 300 MILLIGRAM, QD
     Route: 048
  24. NEXIUM [Concomitant]
     Active Substance: ESOMEPRAZOLE MAGNESIUM
     Dosage: 20 MILLIGRAM, QD
     Route: 048
  25. SODIUM IODIDE I-131 [Concomitant]
     Active Substance: SODIUM IODIDE I-131
     Route: 065
  26. ESOMEPRAZOLE MAGNESIUM [Concomitant]
     Active Substance: ESOMEPRAZOLE MAGNESIUM
     Route: 065
  27. FUROSEMIDE [Concomitant]
     Active Substance: FUROSEMIDE
     Indication: Oedema
     Route: 065
  28. FUROSEMIDE [Concomitant]
     Active Substance: FUROSEMIDE
     Route: 048
     Dates: start: 20240214
  29. GENTEAL TEARS (MILD) [Concomitant]
     Active Substance: DEXTRAN 70\HYPROMELLOSE 2910 (4000 MPA.S)
     Route: 065
  30. TESTOSTERONE CYPIONATE [Concomitant]
     Active Substance: TESTOSTERONE CYPIONATE
     Route: 030
  31. LENVIMA [Concomitant]
     Active Substance: LENVATINIB
     Route: 065
  32. OXYMETAZOLINE [Concomitant]
     Active Substance: OXYMETAZOLINE
     Route: 065
  33. TETRACAINE HYDROCHLORIDE [Concomitant]
     Active Substance: TETRACAINE HYDROCHLORIDE
     Route: 065
  34. WATER FOR INJECTION [Concomitant]
     Active Substance: WATER
     Route: 065
  35. SYSTANE (HYPROMELLOSE 2910 (4000 MPA.S)) [Concomitant]
     Active Substance: HYPROMELLOSE 2910 (4000 MPA.S)
     Route: 065
  36. TESTOSTERONE [Concomitant]
     Active Substance: TESTOSTERONE
     Route: 030
  37. ASPIRIN [Concomitant]
     Active Substance: ASPIRIN
     Dosage: 81 MILLIGRAM, QD
     Route: 048
  38. ASPIRIN [Concomitant]
     Active Substance: ASPIRIN
     Dosage: 81 MILLIGRAM, QD
     Route: 048
     Dates: start: 20240214
  39. KLOR-CON M20 [Concomitant]
     Active Substance: POTASSIUM CHLORIDE
     Dosage: 20 MILLIEQUIVALENT, QD
     Route: 048
  40. METHIMAZOLE [Concomitant]
     Active Substance: METHIMAZOLE
     Indication: Blood cholesterol
     Dosage: 10 MILLIGRAM, QD
     Route: 048
  41. METHIMAZOLE [Concomitant]
     Active Substance: METHIMAZOLE
     Dosage: 40 MILLIGRAM, QD
     Route: 048
     Dates: start: 20240214
  42. SYNTHROID [Concomitant]
     Active Substance: LEVOTHYROXINE SODIUM
     Route: 048
     Dates: start: 20240214
  43. SYNTHROID [Concomitant]
     Active Substance: LEVOTHYROXINE SODIUM
     Route: 048
  44. RIVAROXABAN [Concomitant]
     Active Substance: RIVAROXABAN
     Route: 048
     Dates: start: 20240216
  45. SACUBITRIL\VALSARTAN [Concomitant]
     Active Substance: SACUBITRIL\VALSARTAN
     Dosage: UNK UNK, BID, TAKE ONE-HALF TABLET
     Route: 048
     Dates: start: 20240220

REACTIONS (38)
  - Deafness permanent [Not Recovered/Not Resolved]
  - Endocrine ophthalmopathy [Unknown]
  - Graves^ disease [Unknown]
  - Pneumonia [Unknown]
  - Hypothyroidism [Unknown]
  - Diverticulitis [Unknown]
  - Metastases to bone [Unknown]
  - Metastases to lung [Unknown]
  - Pain [Unknown]
  - Emotional distress [Unknown]
  - Anxiety [Unknown]
  - Discomfort [Unknown]
  - Product use complaint [Unknown]
  - Blood bilirubin increased [Unknown]
  - Blood alkaline phosphatase increased [Unknown]
  - Thyroglobulin increased [Unknown]
  - Vitamin D decreased [Unknown]
  - Blood thyroid stimulating hormone decreased [Unknown]
  - Thyroxine increased [Unknown]
  - Haematocrit increased [Unknown]
  - Blood creatinine decreased [Unknown]
  - Dysphagia [Unknown]
  - Dysphonia [Unknown]
  - Mean cell volume decreased [Unknown]
  - Lymphocyte count increased [Unknown]
  - Red cell distribution width increased [Unknown]
  - Monocyte count increased [Unknown]
  - Neutrophil count decreased [Unknown]
  - Red blood cell count increased [Unknown]
  - Thyroid stimulating immunoglobulin increased [Unknown]
  - Tri-iodothyronine increased [Unknown]
  - Hyperlipidaemia [Unknown]
  - Taste disorder [Unknown]
  - Hypertension [Unknown]
  - Tinnitus [Not Recovered/Not Resolved]
  - Blood glucose increased [Unknown]
  - Fatigue [Unknown]
  - Nausea [Unknown]

NARRATIVE: CASE EVENT DATE: 20220801
